FAERS Safety Report 10520651 (Version 2)
Quarter: 2014Q4

REPORT INFORMATION
  Report Type: Spontaneous
  Country: US (occurrence: US)
  Receive Date: 20141015
  Receipt Date: 20141205
  Transmission Date: 20150528
  Serious: Yes (Other)
  Sender: FDA-Public Use
  Company Number: US-PFIZER INC-2014283099

PATIENT

DRUGS (4)
  1. RITUXAN [Suspect]
     Active Substance: RITUXIMAB
     Indication: DERMATOMYOSITIS
     Dosage: UNK, WEEKLY (4 WEEKLY INFUSIONS)
     Route: 042
     Dates: start: 201404, end: 20141007
  2. IMURAN [Concomitant]
     Active Substance: AZATHIOPRINE
     Indication: DERMATOMYOSITIS
     Dosage: UNK
  3. H.P. ACTHAR [Suspect]
     Active Substance: CORTICOTROPIN
     Indication: DERMATOMYOSITIS
     Dosage: UNK
     Dates: start: 20140403
  4. SOLU-MEDROL [Suspect]
     Active Substance: METHYLPREDNISOLONE SODIUM SUCCINATE
     Indication: PREMEDICATION
     Dosage: UNK

REACTIONS (19)
  - Cognitive disorder [Unknown]
  - Blood creatine phosphokinase increased [Unknown]
  - Retinal tear [Unknown]
  - Erythema [Recovered/Resolved]
  - Asthenia [Unknown]
  - Dysphonia [Unknown]
  - Myalgia [Unknown]
  - Feelings of worthlessness [Unknown]
  - Movement disorder [Unknown]
  - Injection site pain [Recovered/Resolved]
  - Muscular weakness [Unknown]
  - Gait disturbance [Unknown]
  - Myopia [Unknown]
  - Balance disorder [Unknown]
  - Fall [Unknown]
  - Depressed mood [Unknown]
  - Flushing [Recovered/Resolved]
  - Frustration [Unknown]
  - Pain in extremity [Unknown]

NARRATIVE: CASE EVENT DATE: 2008
